FAERS Safety Report 10276856 (Version 4)
Quarter: 2014Q4

REPORT INFORMATION
  Report Type: Spontaneous
  Country: CA (occurrence: CA)
  Receive Date: 20140703
  Receipt Date: 20141112
  Transmission Date: 20150528
  Serious: Yes (Other)
  Sender: FDA-Public Use
  Company Number: CA-GLAXOSMITHKLINE-A1064004A

PATIENT
  Age: 29 Year
  Sex: Female
  Weight: 61.4 kg

DRUGS (4)
  1. PREDNISONE. [Concomitant]
     Active Substance: PREDNISONE
  2. BENLYSTA [Suspect]
     Active Substance: BELIMUMAB
     Indication: SYSTEMIC LUPUS ERYTHEMATOSUS
     Dosage: 630 MG, CYC
     Route: 042
     Dates: start: 20131206, end: 20141014
  3. ANTIRHEUMATIC MEDICATION [Concomitant]
  4. PLAQUENIL [Concomitant]
     Active Substance: HYDROXYCHLOROQUINE SULFATE

REACTIONS (10)
  - Feeling abnormal [Unknown]
  - Headache [Unknown]
  - Chest pain [Unknown]
  - Chest discomfort [Unknown]
  - Therapeutic response decreased [Unknown]
  - Oxygen supplementation [Unknown]
  - Systemic lupus erythematosus [Unknown]
  - Weight decreased [Unknown]
  - Drug ineffective [Unknown]
  - Catheterisation cardiac [Unknown]

NARRATIVE: CASE EVENT DATE: 20141003
